FAERS Safety Report 5009584-6 (Version None)
Quarter: 2006Q2

REPORT INFORMATION
  Report Type: 
  Country: None (occurrence: None)
  Receive Date: 20060524
  Receipt Date: 20060512
  Transmission Date: 20061013
  Serious: Yes (Hospitalization, Other)
  Sender: FDA-Public Use
  Company Number: PHNU2006DE01959

PATIENT
  Sex: Male

DRUGS (12)
  1. CERTICAN [Suspect]
     Indication: HEART TRANSPLANT
     Dosage: 0.75 G, BID
     Dates: start: 20060501
  2. SANDIMMUNE [Suspect]
     Indication: HEART TRANSPLANT
     Dosage: 200MG/DAY
  3. SIMVAHEXAL (NGX) [Suspect]
     Indication: LIPID METABOLISM DISORDER
  4. EZETROL [Suspect]
  5. CELLCEPT [Concomitant]
     Indication: HEART TRANSPLANT
  6. DECORTIN-H [Concomitant]
  7. HEPARIN [Concomitant]
  8. ACETYLSALICYLIC ACID SRT [Concomitant]
     Dosage: 100MG/DAY
  9. NOVODIGAL [Concomitant]
  10. DILZEM [Concomitant]
  11. LASIX [Concomitant]
  12. PANTOZOL [Concomitant]

REACTIONS (3)
  - BLOOD CREATINE PHOSPHOKINASE INCREASED [None]
  - BLOOD CREATININE INCREASED [None]
  - RENAL FAILURE ACUTE [None]
